FAERS Safety Report 10187608 (Version 1)
Quarter: 2014Q2

REPORT INFORMATION
  Report Type: Spontaneous
  Country: US (occurrence: US)
  Receive Date: 20140522
  Receipt Date: 20140522
  Transmission Date: 20141212
  Serious: No
  Sender: FDA-Public Use
  Company Number: US-SANOFI-AVENTIS-2013SA082627

PATIENT
  Age: 69 Year
  Sex: Female
  Weight: 117.93 kg

DRUGS (7)
  1. SOLOSTAR [Suspect]
     Indication: DIABETES MELLITUS
     Dates: start: 20130816
  2. SOLOSTAR [Suspect]
     Indication: DIABETES MELLITUS
     Dates: start: 20130816
  3. LANTUS SOLOSTAR [Suspect]
     Indication: DIABETES MELLITUS
     Dosage: PROCDUCT START DATE- 2007 DOSE:55 UNIT(S)
     Route: 051
     Dates: start: 20130816
  4. LANTUS SOLOSTAR [Suspect]
     Indication: DIABETES MELLITUS
     Dosage: PROCDUCT START DATE- 2007 DOSE:55 UNIT(S)
     Route: 051
     Dates: start: 20130816
  5. OMEPRAZOLE [Concomitant]
     Dosage: PRODUCT STARTED TWO YEARS AGO.
     Route: 065
  6. LOSARTAN [Concomitant]
     Route: 065
     Dates: start: 2010
  7. BYETTA [Concomitant]
     Route: 065
     Dates: start: 2010

REACTIONS (1)
  - Pain in extremity [Not Recovered/Not Resolved]
